FAERS Safety Report 16227263 (Version 2)
Quarter: 2019Q2

REPORT INFORMATION
  Report Type: Spontaneous
  Country: PL (occurrence: PL)
  Receive Date: 20190423
  Receipt Date: 20190423
  Transmission Date: 20190711
  Serious: Yes (Death, Hospitalization, Other)
  Sender: FDA-Public Use
  Company Number: PL-009507513-1904POL009216

PATIENT
  Age: 56 Year
  Sex: Male
  Weight: 71 kg

DRUGS (4)
  1. TRAMADOL HYDROCHLORIDE. [Concomitant]
     Active Substance: TRAMADOL HYDROCHLORIDE
     Indication: PAIN
     Dosage: 50 MILLIGRAM, TID
     Route: 048
     Dates: start: 20190306, end: 20190317
  2. TRITTICO [Concomitant]
     Active Substance: TRAZODONE HYDROCHLORIDE
     Indication: SLEEP DISORDER
     Dosage: 75 MILLIGRAM, QD
     Route: 048
     Dates: start: 20190306, end: 20190317
  3. METOCLOPRAMIDE. [Concomitant]
     Active Substance: METOCLOPRAMIDE
     Indication: NAUSEA
     Dosage: 50 MILLIGRAM, TID
     Route: 048
     Dates: start: 20190306, end: 20190317
  4. PEMBROLIZUMAB. [Suspect]
     Active Substance: PEMBROLIZUMAB
     Indication: LUNG SQUAMOUS CELL CARCINOMA STAGE IV
     Dosage: 1ST CYCLE, 200 MILLIGRAM, EVERY 21 DAYS
     Route: 042
     Dates: start: 20190305, end: 20190317

REACTIONS (3)
  - Vomiting [Unknown]
  - Lung squamous cell carcinoma stage IV [Fatal]
  - Dyspnoea [Unknown]

NARRATIVE: CASE EVENT DATE: 201903
